FAERS Safety Report 7130919 (Version 4)
Quarter: 2013Q2

REPORT INFORMATION
  Report Type: Report from Study
  Country: US (occurrence: US)
  Receive Date: 20090925
  Receipt Date: 20130612
  Transmission Date: 20140414
  Serious: Yes (Hospitalization)
  Sender: FDA-Public Use
  Company Number: US-PFIZER INC-2009254751

PATIENT
  Age: 64 Year
  Sex: Female
  Weight: 104 kg

DRUGS (11)
  1. AMLODIPINE BESYLATE\ATORVASTATIN CALCIUM [Suspect]
     Indication: HYPERTENSION
     Dosage: 10 MG/20 MG, 1X/DAY
     Route: 048
     Dates: start: 20090718, end: 20090731
  2. ATACAND HCT [Suspect]
     Indication: HYPERTENSION
     Dosage: 32 MG/12.5 MG, 1X/DAY
     Route: 048
     Dates: start: 20090720, end: 20090801
  3. TOPROL [Concomitant]
     Dosage: UNK
  4. HYTRIN [Concomitant]
     Dosage: UNK
     Dates: start: 20090726
  5. LASIX [Concomitant]
     Dosage: UNK
     Dates: start: 20090501
  6. GLUCOTROL XL [Concomitant]
     Dosage: UNK
     Dates: start: 20090401
  7. PLAVIX [Concomitant]
     Dosage: UNK
     Dates: start: 20090501
  8. ACETYLSALICYLIC ACID [Concomitant]
     Dosage: UNK
  9. DRISDOL [Concomitant]
     Dosage: UNK
  10. SYNTHROID [Concomitant]
     Dosage: UNK
     Dates: start: 20090801
  11. NORVASC [Concomitant]
     Dosage: UNK
     Dates: start: 20090801

REACTIONS (2)
  - Renal failure [Recovered/Resolved]
  - Gouty arthritis [Recovered/Resolved]
